FAERS Safety Report 23563906 (Version 3)
Quarter: 2024Q2

REPORT INFORMATION
  Report Type: Other
  Country: CA (occurrence: CA)
  Receive Date: 20240226
  Receipt Date: 20240418
  Transmission Date: 20240716
  Serious: Yes (Death, Life-Threatening, Hospitalization, Other)
  Sender: FDA-Public Use
  Company Number: CA-APOTEX-2024AP002498

PATIENT
  Sex: Female

DRUGS (1)
  1. VARENICLINE [Suspect]
     Active Substance: VARENICLINE
     Indication: Product used for unknown indication
     Dosage: UNK
     Route: 065

REACTIONS (5)
  - Breast cancer [Fatal]
  - Lung neoplasm malignant [Fatal]
  - Cancer pain [Fatal]
  - Intentional self-injury [Fatal]
  - Suicide attempt [Fatal]
